FAERS Safety Report 20103202 (Version 1)
Quarter: 2021Q4

REPORT INFORMATION
  Report Type: Report from Study
  Country: US (occurrence: US)
  Receive Date: 20211123
  Receipt Date: 20211123
  Transmission Date: 20220303
  Serious: Yes (Other)
  Sender: FDA-Public Use
  Company Number: US-ALLERGAN-2139491US

PATIENT
  Sex: Female

DRUGS (1)
  1. THYROID, UNSPECIFIED [Suspect]
     Active Substance: THYROID, UNSPECIFIED
     Indication: Product used for unknown indication
     Dosage: 1 PO ON MONDAY/FRIDAY; 2 ON OTHER DAYS
     Route: 048

REACTIONS (1)
  - Neoplasm malignant [Unknown]
